FAERS Safety Report 8603606-9 (Version None)
Quarter: 2012Q3

REPORT INFORMATION
  Report Type: 
  Country: None (occurrence: None)
  Receive Date: 20120817
  Receipt Date: 20120808
  Transmission Date: 20120928
  Serious: Yes (Other)
  Sender: FDA-Public Use
  Company Number: US-ROCHE-1065029

PATIENT
  Sex: Female
  Weight: 49.94 kg

DRUGS (6)
  1. DICYCLOMINE [Concomitant]
  2. MINOCYCLINE HCL [Concomitant]
  3. MAXALT-MLT [Concomitant]
  4. ACCUTANE [Suspect]
     Dates: start: 20001221, end: 20010121
  5. ACCUTANE [Suspect]
     Indication: ACNE
     Dates: start: 19990101, end: 20001201
  6. ALLEGRA [Concomitant]

REACTIONS (5)
  - INFLAMMATORY BOWEL DISEASE [None]
  - DEPRESSION [None]
  - CROHN'S DISEASE [None]
  - COLONIC POLYP [None]
  - COLITIS ULCERATIVE [None]
